FAERS Safety Report 9239156 (Version 1)
Quarter: 2013Q2

REPORT INFORMATION
  Report Type: Spontaneous
  Country: US (occurrence: US)
  Receive Date: 20130418
  Receipt Date: 20130418
  Transmission Date: 20140414
  Serious: Yes (Other)
  Sender: FDA-Public Use
  Company Number: US-JNJFOC-20130408910

PATIENT
  Age: 25 Year
  Sex: Female

DRUGS (3)
  1. TOPAMAX [Suspect]
     Indication: CONVULSION
     Route: 065
  2. DILANTIN [Suspect]
     Indication: CONVULSION
     Route: 065
  3. PRENATAL VITAMINS [Concomitant]
     Indication: VITAMIN SUPPLEMENTATION
     Route: 065

REACTIONS (2)
  - Abortion spontaneous [Unknown]
  - Exposure during pregnancy [Recovered/Resolved]
